FAERS Safety Report 15412634 (Version 1)
Quarter: 2018Q3

REPORT INFORMATION
  Report Type: Spontaneous
  Country: US (occurrence: US)
  Receive Date: 20180921
  Receipt Date: 20180921
  Transmission Date: 20181010
  Serious: No
  Sender: FDA-Public Use
  Company Number: US-TEVA-2018-US-955675

PATIENT
  Sex: Female

DRUGS (1)
  1. CLONAZEPAM. [Suspect]
     Active Substance: CLONAZEPAM
     Indication: ANXIETY
     Dosage: .5 MILLIGRAM DAILY;
     Route: 065
     Dates: start: 201808

REACTIONS (3)
  - Anxiety [Unknown]
  - Wrong technique in product usage process [Unknown]
  - Product use in unapproved indication [Unknown]
